FAERS Safety Report 21855426 (Version 1)
Quarter: 2023Q1

REPORT INFORMATION
  Report Type: Report from Study
  Country: US (occurrence: US)
  Receive Date: 20230112
  Receipt Date: 20230112
  Transmission Date: 20230418
  Serious: No
  Sender: FDA-Public Use
  Company Number: US-ABBVIE-4233051

PATIENT
  Age: 80 Year
  Sex: Female

DRUGS (26)
  1. RINVOQ [Suspect]
     Active Substance: UPADACITINIB
     Indication: Rheumatoid arthritis
     Route: 048
     Dates: start: 20200629
  2. AMLODIPINE TAB 5MG [Concomitant]
     Indication: Product used for unknown indication
  3. PROMETHAZINE SYP DM [Concomitant]
     Indication: Product used for unknown indication
  4. LEVEMIR INJ FLEXTOUC [Concomitant]
     Indication: Product used for unknown indication
  5. FLUOXETINE CAP 20MG [Concomitant]
     Indication: Product used for unknown indication
  6. CELECOXIB CAP 200MG [Concomitant]
     Indication: Product used for unknown indication
  7. ONDANSETRON TAB 4MG ODT [Concomitant]
     Indication: Product used for unknown indication
  8. APAP/CODEINE TAB 300-30MG [Concomitant]
     Indication: Product used for unknown indication
  9. METHOTREXATE [Concomitant]
     Active Substance: METHOTREXATE
     Indication: Product used for unknown indication
  10. METOPROL TAR TAB 25MG [Concomitant]
     Indication: Product used for unknown indication
  11. ATORVASTATIN TAB 20MG [Concomitant]
     Indication: Product used for unknown indication
  12. LOSARTAN POT TAB 50MG [Concomitant]
     Indication: Product used for unknown indication
  13. ESOMEPRAZOLE MAGNESIUM [Concomitant]
     Active Substance: ESOMEPRAZOLE MAGNESIUM
     Indication: Product used for unknown indication
  14. VALACYCLOVIR [Concomitant]
     Active Substance: VALACYCLOVIR HYDROCHLORIDE
     Indication: Product used for unknown indication
  15. FAMOTIDINE TAB 40MG [Concomitant]
     Indication: Product used for unknown indication
  16. JENTADUETO TAB XR [Concomitant]
     Indication: Product used for unknown indication
  17. OMEPRAZOLE [Concomitant]
     Active Substance: OMEPRAZOLE
     Indication: Product used for unknown indication
  18. CLOPIDOGREL TAB 75MG [Concomitant]
     Indication: Product used for unknown indication
  19. LOSARTAN POT TAB 100MG [Concomitant]
     Indication: Product used for unknown indication
  20. FOLIC ACID TAB 1MG [Concomitant]
     Indication: Product used for unknown indication
  21. GABAPENTIN [Concomitant]
     Active Substance: GABAPENTIN
     Indication: Product used for unknown indication
  22. PANTOPRAZOLE TAB 40MG [Concomitant]
     Indication: Product used for unknown indication
  23. WIXELA INHUB AER 500/50 [Concomitant]
     Indication: Product used for unknown indication
  24. AZITHROMYCIN TAB 250MG [Concomitant]
     Indication: Product used for unknown indication
  25. LEVOTHYROXIN TAB 50MCG [Concomitant]
     Indication: Product used for unknown indication
  26. AMOX K CLAV TAB 875-125 [Concomitant]
     Indication: Product used for unknown indication

REACTIONS (2)
  - Rheumatoid arthritis [Not Recovered/Not Resolved]
  - Loss of personal independence in daily activities [Not Recovered/Not Resolved]

NARRATIVE: CASE EVENT DATE: 20221130
